FAERS Safety Report 4830160-X (Version None)
Quarter: 2005Q4

REPORT INFORMATION
  Report Type: 
  Country: None (occurrence: None)
  Receive Date: 20051117
  Receipt Date: 20050928
  Transmission Date: 20060501
  Serious: Yes (Hospitalization, Disabling, Other)
  Sender: FDA-Public Use
  Company Number: US-MERCK-0509USA04802

PATIENT
  Age: 54 Year
  Sex: Female
  Weight: 63 kg

DRUGS (6)
  1. VIOXX [Suspect]
     Indication: INFLAMMATION
     Route: 048
     Dates: start: 20040419, end: 20040501
  2. VIOXX [Suspect]
     Route: 048
     Dates: start: 20040419, end: 20040501
  3. VIOXX [Suspect]
     Indication: MUSCULOSKELETAL CHEST PAIN
     Route: 048
     Dates: start: 20040419, end: 20040501
  4. VIOXX [Suspect]
     Route: 048
     Dates: start: 20040419, end: 20040501
  5. PERCOCET [Concomitant]
     Route: 065
  6. OXYCODONE AND ACETAMINOPHEN [Concomitant]
     Route: 065

REACTIONS (3)
  - CEREBROVASCULAR ACCIDENT [None]
  - CHEST PAIN [None]
  - HEMIPARESIS [None]
